FAERS Safety Report 6777306 (Version 2)
Quarter: 2013Q1

REPORT INFORMATION
  Report Type: Spontaneous
  Country: GB (occurrence: GB)
  Receive Date: 20081002
  Receipt Date: 20130110
  Transmission Date: 20140127
  Serious: Yes (Hospitalization)
  Sender: FDA-Public Use
  Company Number: PHHY2008GB17746

PATIENT
  Sex: Male

DRUGS (10)
  1. CLOZARIL [Suspect]
     Indication: SCHIZOPHRENIA
     Dosage: 300 MG, QD
     Route: 048
     Dates: start: 200401, end: 20080723
  2. FERROUS SULPHATE [Suspect]
     Dosage: 600 MG, QD
     Route: 048
     Dates: start: 20080610, end: 20080714
  3. VALPROATE SODIUM [Concomitant]
     Indication: EPILEPSY
     Dosage: 400 MG, BID
     Route: 048
     Dates: start: 20080712
  4. AMISULPRIDE [Concomitant]
     Indication: SCHIZOPHRENIA
     Dosage: 300 MG, QD
     Route: 048
     Dates: start: 20080712
  5. LACTULOSE [Concomitant]
     Indication: CONSTIPATION
     Dosage: 15 MG, BID
     Route: 048
     Dates: start: 20080712, end: 20080721
  6. BECLOMETASONE [Concomitant]
     Indication: ASTHMA
     Dosage: 15 MG, BID
     Route: 048
     Dates: start: 20080712
  7. IPRATROPIUM [Concomitant]
     Indication: SALIVARY HYPERSECRETION
     Dosage: UNK
     Route: 045
     Dates: start: 20080711, end: 20080718
  8. FYBOGEL [Concomitant]
     Indication: CONSTIPATION
     Dosage: UNK BID
     Route: 048
     Dates: start: 20080711, end: 20080714
  9. LANSOPRAZOLE [Concomitant]
     Dosage: 30 MG, QD
     Route: 048
     Dates: start: 20080206, end: 20080807
  10. ASCORBIC ACID [Concomitant]
     Dosage: 500 MG, QD
     Route: 048
     Dates: start: 20080206, end: 20080714

REACTIONS (4)
  - Gastrointestinal necrosis [Recovered/Resolved with Sequelae]
  - Constipation [Recovered/Resolved with Sequelae]
  - Abdominal pain [Recovered/Resolved with Sequelae]
  - X-ray abnormal [Recovered/Resolved with Sequelae]
